FAERS Safety Report 15629274 (Version 1)
Quarter: 2018Q4

REPORT INFORMATION
  Report Type: Spontaneous
  Country: CA (occurrence: CA)
  Receive Date: 20181116
  Receipt Date: 20181116
  Transmission Date: 20190205
  Serious: Yes (Other)
  Sender: FDA-Public Use
  Company Number: CA-ABBVIE-17K-028-2160356-00

PATIENT
  Age: 84 Year
  Sex: Male

DRUGS (4)
  1. SULFASALAZINE. [Suspect]
     Active Substance: SULFASALAZINE
     Indication: RHEUMATOID ARTHRITIS
     Route: 065
     Dates: start: 20070101
  2. HUMIRA [Suspect]
     Active Substance: ADALIMUMAB
     Indication: RHEUMATOID ARTHRITIS
     Route: 058
  3. ENBREL [Suspect]
     Active Substance: ETANERCEPT
     Indication: RHEUMATOID ARTHRITIS
     Route: 065
  4. METHOTREXATE. [Suspect]
     Active Substance: METHOTREXATE
     Indication: RHEUMATOID ARTHRITIS
     Dosage: 17.0 YEAR(S)
     Route: 065
     Dates: start: 20011201, end: 20170801

REACTIONS (7)
  - Contraindication to medical treatment [Unknown]
  - Treatment failure [Unknown]
  - Drug intolerance [Unknown]
  - Organising pneumonia [Unknown]
  - Drug effect incomplete [Unknown]
  - Therapeutic response changed [Unknown]
  - Drug ineffective [Unknown]
